FAERS Safety Report 14320130 (Version 2)
Quarter: 2018Q4

REPORT INFORMATION
  Report Type: Spontaneous
  Country: PL (occurrence: PL)
  Receive Date: 20171222
  Receipt Date: 20181008
  Transmission Date: 20190204
  Serious: Yes (Other)
  Sender: FDA-Public Use
  Company Number: PL-DEPOMED, INC.-PL-2017DEP002438

PATIENT
  Age: 61 Year
  Sex: Male

DRUGS (8)
  1. OXYCODONE [Suspect]
     Active Substance: OXYCODONE
     Indication: PERIPHERAL SENSORY NEUROPATHY
     Dosage: 10 MG, BID
  2. AMITRIPTYLINE [Suspect]
     Active Substance: AMITRIPTYLINE
     Indication: PERIPHERAL SENSORY NEUROPATHY
     Dosage: 25 MG, QD
     Route: 065
  3. TAPENTADOL HYDROCHLORIDE [Suspect]
     Active Substance: TAPENTADOL HYDROCHLORIDE
     Dosage: 150 MG, QD
     Route: 065
  4. PREGABALIN. [Suspect]
     Active Substance: PREGABALIN
     Dosage: 150 MG, BID
     Route: 065
  5. TAPENTADOL HYDROCHLORIDE [Suspect]
     Active Substance: TAPENTADOL HYDROCHLORIDE
     Indication: PERIPHERAL SENSORY NEUROPATHY
     Dosage: 50 MG, QD
     Route: 065
  6. PREGABALIN. [Suspect]
     Active Substance: PREGABALIN
     Indication: PERIPHERAL SENSORY NEUROPATHY
     Dosage: 75 MG, QD
     Route: 065
  7. OXALIPLATIN. [Suspect]
     Active Substance: OXALIPLATIN
     Indication: ADENOCARCINOMA OF COLON
     Dosage: UNK
     Route: 065
  8. PREGABALIN. [Suspect]
     Active Substance: PREGABALIN
     Dosage: 75 MG, BID

REACTIONS (17)
  - Neuropathy peripheral [Recovering/Resolving]
  - Fatigue [Unknown]
  - Balance disorder [Unknown]
  - Dysaesthesia [Unknown]
  - Sedation [Unknown]
  - Allodynia [Unknown]
  - Quality of life decreased [Unknown]
  - Pain in extremity [Unknown]
  - Hyperaesthesia [Unknown]
  - Palpitations [Unknown]
  - Vomiting [Unknown]
  - Hypoaesthesia [Unknown]
  - Disturbance in attention [Unknown]
  - Nausea [Unknown]
  - Asthenia [Unknown]
  - Burning sensation [Unknown]
  - Constipation [Unknown]
